FAERS Safety Report 7204015-X (Version None)
Quarter: 2010Q4

REPORT INFORMATION
  Report Type: 
  Country: None (occurrence: None)
  Receive Date: 20101230
  Receipt Date: 20101216
  Transmission Date: 20110411
  Serious: Yes (Hospitalization, Other)
  Sender: FDA-Public Use
  Company Number: PHHY2010PK85704

PATIENT
  Age: 74 Year
  Sex: Female

DRUGS (1)
  1. METRONIDAZOLE [Suspect]
     Indication: FEMALE GENITAL TRACT FISTULA
     Dosage: 1000 MG/DAY

REACTIONS (13)
  - CEREBELLAR SYNDROME [None]
  - COGWHEEL RIGIDITY [None]
  - DYSARTHRIA [None]
  - DYSPHAGIA [None]
  - ENCEPHALOPATHY [None]
  - GAIT DISTURBANCE [None]
  - HYPOREFLEXIA [None]
  - MINI MENTAL STATUS EXAMINATION ABNORMAL [None]
  - NUCLEAR MAGNETIC RESONANCE IMAGING BRAIN ABNORMAL [None]
  - NYSTAGMUS [None]
  - POLYNEUROPATHY [None]
  - SENSORY DISTURBANCE [None]
  - VITAMIN B12 DECREASED [None]
